FAERS Safety Report 18439142 (Version 1)
Quarter: 2020Q4

REPORT INFORMATION
  Report Type: Report from Study
  Country: US (occurrence: US)
  Receive Date: 20201028
  Receipt Date: 20201028
  Transmission Date: 20210114
  Serious: Yes (Life-Threatening, Hospitalization)
  Sender: FDA-Public Use
  Company Number: US-GILEAD-2020-0498852

PATIENT
  Age: 78 Year
  Sex: Male
  Weight: 97 kg

DRUGS (36)
  1. MIRALAX [Concomitant]
     Active Substance: POLYETHYLENE GLYCOL 3350
     Indication: CONSTIPATION
     Dosage: UNK
     Dates: start: 20200923, end: 20200928
  2. SODIUM CITRATE ACID [Concomitant]
     Active Substance: DISODIUM HYDROGEN CITRATE
     Indication: ACUTE KIDNEY INJURY
     Dosage: UNK
     Dates: start: 20200925, end: 20200927
  3. ASPIRIN 81 [Concomitant]
     Active Substance: ASPIRIN
     Dosage: UNK
     Dates: end: 20200928
  4. HYDROCORTISONE. [Concomitant]
     Active Substance: HYDROCORTISONE
     Indication: COVID-19
     Dosage: UNK
     Dates: start: 20200926, end: 20200929
  5. LISINOPRIL. [Concomitant]
     Active Substance: LISINOPRIL
     Indication: HYPERTENSION
     Dosage: UNK
     Dates: end: 20200927
  6. TORSEMIDE. [Concomitant]
     Active Substance: TORSEMIDE
     Dosage: UNK
     Dates: end: 20200927
  7. PRAVASTATIN. [Concomitant]
     Active Substance: PRAVASTATIN
     Indication: HYPERLIPIDAEMIA
     Dosage: UNK
     Dates: end: 20200927
  8. NOREPINEPHRINE. [Concomitant]
     Active Substance: NOREPINEPHRINE
     Indication: SEPTIC SHOCK
     Dosage: UNK
     Dates: start: 20200923, end: 20200929
  9. HEPARIN [Concomitant]
     Active Substance: HEPARIN SODIUM
     Indication: DEEP VEIN THROMBOSIS
     Dosage: UNK
     Dates: start: 20200923, end: 20200928
  10. HYDROMORPHONE [Concomitant]
     Active Substance: HYDROMORPHONE
     Indication: PAIN
     Dosage: UNK
     Dates: start: 20200924, end: 20200929
  11. BLINDED INTERFERON BETA-1A [Suspect]
     Active Substance: INTERFERON BETA-1A
     Dosage: 44 MEQ, QOD
     Route: 058
     Dates: start: 20200918, end: 20200918
  12. PLACEBO [Suspect]
     Active Substance: UNSPECIFIED INGREDIENT
     Dosage: 44 MEQ, QOD
     Route: 058
     Dates: start: 20200918, end: 20200918
  13. METOPROLOL. [Concomitant]
     Active Substance: METOPROLOL
     Indication: HYPERTENSION
     Dosage: UNK
     Dates: end: 20200927
  14. FAMOTIDINE. [Concomitant]
     Active Substance: FAMOTIDINE
     Indication: GASTROOESOPHAGEAL REFLUX DISEASE
     Dosage: UNK
     Dates: end: 20200927
  15. DEXAMETHASONE. [Concomitant]
     Active Substance: DEXAMETHASONE
     Indication: COVID-19
     Dosage: UNK
     Dates: start: 20200918
  16. FUROSEMIDE. [Concomitant]
     Active Substance: FUROSEMIDE
     Dosage: UNK
     Dates: start: 20200921, end: 20200926
  17. AMIODARONE [Concomitant]
     Active Substance: AMIODARONE
     Indication: ARRHYTHMIA
     Dosage: UNK
     Dates: start: 20200927
  18. INSULIN REGULAR [INSULIN BOVINE] [Concomitant]
     Active Substance: INSULIN BEEF
     Dosage: UNK
     Dates: start: 20200927
  19. PHENYLEPHRINE [Concomitant]
     Active Substance: PHENYLEPHRINE HYDROCHLORIDE
     Indication: SEPTIC SHOCK
     Dosage: UNK
     Dates: start: 20200927, end: 20200929
  20. KETAMINE [Concomitant]
     Active Substance: KETAMINE
     Indication: SEDATION
     Dosage: UNK
     Dates: start: 20200923, end: 20200929
  21. DOCUSATE SODIUM. [Concomitant]
     Active Substance: DOCUSATE SODIUM
     Indication: CONSTIPATION
     Dosage: UNK
     Dates: start: 20200923, end: 20200928
  22. INSULIN GLARGINE [Concomitant]
     Active Substance: INSULIN GLARGINE
     Indication: TYPE 2 DIABETES MELLITUS
     Dosage: UNK
     Dates: start: 20200925, end: 20200928
  23. MEROPENEM. [Concomitant]
     Active Substance: MEROPENEM
     Indication: SEPTIC SHOCK
     Dosage: UNK
     Dates: start: 20200926, end: 20200927
  24. BICARBONATE [Concomitant]
     Active Substance: SODIUM BICARBONATE
     Indication: RENAL REPLACEMENT THERAPY
     Dosage: UNK
     Dates: start: 20200927, end: 20200929
  25. PLACEBO [Suspect]
     Active Substance: UNSPECIFIED INGREDIENT
     Indication: COVID-19
     Dosage: 100 MG, QD
     Route: 042
     Dates: start: 20200918, end: 20200925
  26. VANCOMYCIN [Concomitant]
     Active Substance: VANCOMYCIN
     Indication: COVID-19 PNEUMONIA
     Dosage: UNK
     Dates: start: 20200923, end: 20200929
  27. CEFEPIME [Concomitant]
     Active Substance: CEFEPIME HYDROCHLORIDE
     Indication: COVID-19 PNEUMONIA
     Dosage: UNK
     Dates: start: 20200923, end: 20200926
  28. VASOPRESSIN. [Concomitant]
     Active Substance: VASOPRESSIN
     Indication: SEPTIC SHOCK
     Dosage: UNK
     Dates: start: 20200926, end: 20200929
  29. LACTULOSE. [Concomitant]
     Active Substance: LACTULOSE
     Dosage: UNK
     Dates: start: 20200926, end: 20200929
  30. CALCIUM CHLORIDE. [Concomitant]
     Active Substance: CALCIUM CHLORIDE
     Indication: HYPOCALCAEMIA
     Dosage: UNK
     Dates: start: 20200927
  31. BLINDED INTERFERON BETA-1A [Suspect]
     Active Substance: INTERFERON BETA-1A
     Indication: COVID-19
     Dosage: 100 MG, QD
     Route: 042
     Dates: start: 20200918, end: 20200925
  32. REMDESIVIR. [Suspect]
     Active Substance: REMDESIVIR
     Indication: COVID-19
     Dosage: 100 MG, QD
     Route: 042
     Dates: start: 20200916, end: 20200925
  33. INSULIN ASPART [Concomitant]
     Active Substance: INSULIN ASPART
     Indication: TYPE 2 DIABETES MELLITUS
     Dosage: UNK
     Dates: start: 20200920, end: 20200928
  34. MIDAZOLAM. [Concomitant]
     Active Substance: MIDAZOLAM
     Indication: SEDATION
     Dosage: UNK
     Dates: start: 20200923, end: 20200929
  35. FLUDROCORTISONE [Concomitant]
     Active Substance: FLUDROCORTISONE
     Indication: COVID-19
     Dosage: UNK
     Dates: start: 20200926, end: 20200929
  36. CALCIUM [Concomitant]
     Active Substance: CALCIUM
     Indication: RENAL REPLACEMENT THERAPY
     Dosage: UNK
     Dates: start: 20200927, end: 20200929

REACTIONS (1)
  - Streptococcal infection [Not Recovered/Not Resolved]

NARRATIVE: CASE EVENT DATE: 20200927
